FAERS Safety Report 5563600-1 (Version None)
Quarter: 2007Q4

REPORT INFORMATION
  Report Type: 
  Country: None (occurrence: None)
  Receive Date: 20071217
  Receipt Date: 20070705
  Transmission Date: 20080405
  Serious: No
  Sender: FDA-Public Use
  Company Number: US-ASTRAZENECA-2007UW15843

PATIENT
  Age: 75 Year
  Sex: Female
  Weight: 68 kg

DRUGS (5)
  1. CRESTOR [Suspect]
     Indication: BLOOD CHOLESTEROL INCREASED
     Route: 048
     Dates: start: 20070501
  2. BENAZEPRIL HYDROCHLORIDE [Concomitant]
  3. ZETIA [Concomitant]
  4. COUMADIN [Concomitant]
  5. PEPCID [Concomitant]

REACTIONS (1)
  - TREMOR [None]
